FAERS Safety Report 17523162 (Version 1)
Quarter: 2020Q1

REPORT INFORMATION
  Report Type: Spontaneous
  Country: DE (occurrence: DE)
  Receive Date: 20200310
  Receipt Date: 20200310
  Transmission Date: 20200409
  Serious: Yes (Hospitalization)
  Sender: FDA-Public Use
  Company Number: DE-MYLANLABS-03P-062-0758854-00

PATIENT
  Sex: Female
  Weight: 100 kg

DRUGS (36)
  1. BIFITERAL [Suspect]
     Active Substance: LACTULOSE
     Indication: PRODUCT USED FOR UNKNOWN INDICATION
     Dosage: DAILY DOSE: 1 DF. FREQUENCY:ONCE
     Route: 048
     Dates: start: 20010306, end: 20010306
  2. AURORIX 150 MG [Suspect]
     Active Substance: MOCLOBEMIDE
     Indication: PRODUCT USED FOR UNKNOWN INDICATION
     Dosage: DAILY DOSE: 300 MG.
     Route: 048
     Dates: start: 20010305
  3. VALDISPERT [Suspect]
     Active Substance: HERBALS
     Dosage: DAILY DOSE: UNK. FREQUENCY:UNKNOWN
     Route: 048
     Dates: start: 20010325, end: 20010325
  4. DORMICUM                           /00036201/ [Suspect]
     Active Substance: NITRAZEPAM
     Indication: RESTLESSNESS
     Dosage: DAILY DOSE: 7.5 MG. FREQUENCY:UNKNOWN
     Route: 048
     Dates: start: 20010320, end: 20010325
  5. PANTOZOL [Suspect]
     Active Substance: PANTOPRAZOLE SODIUM
     Indication: PROPHYLAXIS AGAINST GASTROINTESTINAL ULCER
     Dosage: DAILY DOSE: 1 DF.
     Route: 048
     Dates: start: 20010305
  6. FORTECORTIN                        /00016001/ [Suspect]
     Active Substance: DEXAMETHASONE
     Indication: PROPHYLAXIS
  7. PASPERTIN (METOCLOPRAMIDE HYDROCHLORIDE) [Suspect]
     Active Substance: METOCLOPRAMIDE HYDROCHLORIDE
     Indication: PRODUCT USED FOR UNKNOWN INDICATION
     Dosage: DAILY DOSE: 20 DF. FREQUENCY:ONCE
     Route: 048
     Dates: start: 20010319
  8. NOVALGIN (METAMIZOLE SODIUM) [Suspect]
     Active Substance: METAMIZOLE SODIUM
     Indication: PAIN
     Dosage: DAILY DOSE: 40 DF.
     Route: 048
     Dates: start: 20010304, end: 20010304
  9. ATOSIL                             /00133602/ [Suspect]
     Active Substance: ISOPROMETHAZINE
     Indication: RESTLESSNESS
     Dosage: DAILY DOSE: UNK. FREQUENCY:UNKNOWN
     Route: 048
     Dates: start: 20010305, end: 20010306
  10. PANCURONIUM [Concomitant]
     Active Substance: PANCURONIUM
     Indication: ANAESTHESIA
     Dosage: DAILY DOSE: UNK. FREQUENCY:UNKNOWN
     Route: 042
     Dates: start: 20010301, end: 20010301
  11. VALDISPERT [Suspect]
     Active Substance: HERBALS
     Indication: RESTLESSNESS
     Dosage: DAILY DOSE: UNK. FREQUENCY:UNKNOWN
     Route: 048
     Dates: start: 20010307, end: 20010307
  12. COTRIM FORTE [Suspect]
     Active Substance: SULFAMETHOXAZOLE\TRIMETHOPRIM
     Indication: URINARY TRACT INFECTION
     Dosage: DAILY DOSE: 2 DF.
     Route: 048
     Dates: start: 20010319, end: 20010323
  13. ACERBON [Suspect]
     Active Substance: LISINOPRIL
     Indication: HYPERTENSION
     Dosage: DAILY DOSE: 5 MG.
     Route: 048
     Dates: start: 20010305
  14. SYSTRAL /00172602/ [Suspect]
     Active Substance: CHLORPHENOXAMINE HYDROCHLORIDE
     Indication: PRURITUS
     Dosage: DAILY DOSE: UNK. FREQUENCY:AS NEEDED
     Route: 061
     Dates: start: 20010318, end: 20010325
  15. VALDISPERT [Suspect]
     Active Substance: HERBALS
     Dosage: DAILY DOSE: UNK. FREQUENCY:UNKNOWN
     Route: 048
     Dates: start: 20010309, end: 20010309
  16. IMESON [Suspect]
     Active Substance: NITRAZEPAM
     Indication: RESTLESSNESS
     Dosage: DAILY DOSE: 1 DF. FREQUENCY:UNKNOWN
     Route: 048
     Dates: start: 20010307, end: 20010311
  17. NOVALGIN (METAMIZOLE SODIUM) [Concomitant]
     Active Substance: METAMIZOLE SODIUM
     Indication: PAIN
     Dosage: DAILY DOSE: 1 G. FREQUENCY:ONCE
     Route: 042
     Dates: start: 20010301, end: 20010301
  18. ZENTROPIL /00017401/ [Suspect]
     Active Substance: PHENYTOIN
     Indication: SEIZURE PROPHYLAXIS
     Dosage: DAILY DOSE: UNK.
     Route: 048
     Dates: start: 20010222, end: 20010305
  19. ADUMBRAN [Suspect]
     Active Substance: OXAZEPAM
     Indication: SLEEP DISORDER
     Dosage: DAILY DOSE: 1 DF. FREQUENCY:ONCE
     Route: 048
     Dates: start: 20010305, end: 20010305
  20. INNOHEP [Suspect]
     Active Substance: TINZAPARIN SODIUM
     Indication: THROMBOSIS PROPHYLAXIS
     Dosage: DAILY DOSE: 1 DF.
     Route: 058
     Dates: start: 20010305
  21. LIQUEMIN N [Suspect]
     Active Substance: HEPARIN SODIUM
     Indication: THROMBOSIS PROPHYLAXIS
     Dosage: DAILY DOSE: 22500 IU.
     Route: 058
     Dates: end: 20010305
  22. ROHYPNOL [Concomitant]
     Active Substance: FLUNITRAZEPAM
     Indication: SLEEP DISORDER
     Dosage: DAILY DOSE: 1 DF. FREQUENCY:UNKNOWN
     Route: 048
     Dates: start: 20010228, end: 20010301
  23. GURGELLOESUNG [Concomitant]
     Indication: DENTAL DISORDER PROPHYLAXIS
     Dosage: DAILY DOSE: 4 DF.
     Route: 048
     Dates: start: 20010324, end: 20010324
  24. STILNOX [Concomitant]
     Active Substance: ZOLPIDEM TARTRATE
     Indication: RESTLESSNESS
     Dosage: DAILY DOSE: 1 DF. FREQUENCY:UNKNOWN
     Route: 048
     Dates: start: 20010326, end: 20010326
  25. PARACETAMOL [Suspect]
     Active Substance: ACETAMINOPHEN
     Indication: PRODUCT USED FOR UNKNOWN INDICATION
     Dosage: DAILY DOSE: UNK. FREQUENCY:UNKNOWN
     Route: 048
     Dates: start: 20010307, end: 20010308
  26. VALDISPERT [Suspect]
     Active Substance: HERBALS
     Dosage: DAILY DOSE: UNK. FREQUENCY:UNKNOWN
     Route: 048
     Dates: start: 20010318, end: 20010322
  27. ASPIRIN. [Suspect]
     Active Substance: ASPIRIN
     Dosage: DAILY DOSE: UNK. FREQUENCY:AS NEEDED STRENGTH 500
     Route: 048
     Dates: start: 20010309, end: 20010311
  28. PEPDUL [Suspect]
     Active Substance: FAMOTIDINE
     Indication: PROPHYLAXIS AGAINST GASTROINTESTINAL ULCER
     Dosage: DAILY DOSE: 1 DF.
     Route: 048
     Dates: end: 20010305
  29. FENTANYL. [Concomitant]
     Active Substance: FENTANYL
     Indication: ANAESTHESIA
     Dosage: DAILY DOSE: 40 MG.
     Route: 042
     Dates: start: 20010301, end: 20010301
  30. ANAESTHESULF                       /00609401/ [Concomitant]
     Indication: RASH
     Dosage: DAILY DOSE: UNK. FREQUENCY:AS NEEDED
     Route: 061
     Dates: start: 20010326, end: 20010326
  31. ASPIRIN. [Suspect]
     Active Substance: ASPIRIN
     Indication: HEADACHE
     Dosage: DAILY DOSE: UNK. FREQUENCY:AS NEEDED
     Route: 048
     Dates: start: 20010306, end: 20010307
  32. FORTECORTIN                        /00016001/ [Suspect]
     Active Substance: DEXAMETHASONE
     Indication: HEADACHE
     Dosage: UNK UNK, PRN
     Route: 048
  33. FENISTIL [Concomitant]
     Active Substance: DIMETHINDENE
     Indication: RASH
     Dosage: DAILY DOSE: 1 DF. FREQUENCY:ONCE
     Route: 042
     Dates: start: 20010326, end: 20010326
  34. DOXEPIN [Suspect]
     Active Substance: DOXEPIN
     Indication: PRODUCT USED FOR UNKNOWN INDICATION
     Dosage: DAILY DOSE: UNK. FREQUENCY:UNKNOWN
     Route: 048
     Dates: start: 20010305, end: 20010306
  35. PHENHYDAN                          /00017401/ [Suspect]
     Active Substance: PHENYTOIN
     Indication: SEIZURE PROPHYLAXIS
     Dosage: DAILY DOSE: UNK. FREQUENCY:UNKNOWN
     Route: 048
     Dates: start: 20010305, end: 20010325
  36. THIOPENTAL [Concomitant]
     Active Substance: THIOPENTAL
     Indication: ANAESTHESIA
     Dosage: DAILY DOSE: 350 MG. FREQUENCY:ONCE
     Route: 042
     Dates: start: 20010301, end: 20010301

REACTIONS (2)
  - Stevens-Johnson syndrome [Recovered/Resolved]
  - Toxic epidermal necrolysis [Recovered/Resolved]

NARRATIVE: CASE EVENT DATE: 20010324
